FAERS Safety Report 18962715 (Version 1)
Quarter: 2021Q1

REPORT INFORMATION
  Report Type: Spontaneous
  Country: US (occurrence: US)
  Receive Date: 20210302
  Receipt Date: 20210302
  Transmission Date: 20210420
  Serious: Yes (Death)
  Sender: FDA-Public Use
  Company Number: None

PATIENT
  Age: 56 Year
  Sex: Male
  Weight: 54.2 kg

DRUGS (2)
  1. MYCOPHENOLATE 250MG [Suspect]
     Active Substance: MYCOPHENOLIC ACID
     Indication: HEART TRANSPLANT
     Dosage: 2 BID
     Route: 048
     Dates: start: 20200801, end: 20210220
  2. TACROLIMUS 1MG [Suspect]
     Active Substance: TACROLIMUS
     Indication: HEART TRANSPLANT
     Dosage: 4 BID
     Route: 048
     Dates: start: 20200801, end: 20210220

REACTIONS (9)
  - Coronary artery disease [None]
  - Dyspnoea [None]
  - COVID-19 pneumonia [None]
  - Dysphonia [None]
  - Suspected COVID-19 [None]
  - Hypotension [None]
  - Palliative care [None]
  - Cough [None]
  - Systemic inflammatory response syndrome [None]

NARRATIVE: CASE EVENT DATE: 20210202
